FAERS Safety Report 5143821-2 (Version None)
Quarter: 2006Q4

REPORT INFORMATION
  Report Type: 
  Country: None (occurrence: None)
  Receive Date: 20061102
  Receipt Date: 20061102
  Transmission Date: 20070319
  Serious: Yes (Hospitalization)
  Sender: FDA-Public Use
  Company Number: None

PATIENT
  Age: 11 Year
  Sex: Female
  Weight: 36 kg

DRUGS (1)
  1. REGLAN [Suspect]
     Indication: ILL-DEFINED DISORDER
     Dosage: 6 MG QID PO
     Route: 048

REACTIONS (1)
  - DYSTONIA [None]
